FAERS Safety Report 23453450 (Version 1)
Quarter: 2024Q1

REPORT INFORMATION
  Report Type: Spontaneous
  Country: US (occurrence: US)
  Receive Date: 20240129
  Receipt Date: 20240129
  Transmission Date: 20240410
  Serious: No
  Sender: FDA-Public Use
  Company Number: US-FreseniusKabi-FK202401263

PATIENT
  Age: 56 Year
  Sex: Male
  Weight: 104.5 kg

DRUGS (18)
  1. HEPARIN SODIUM [Suspect]
     Active Substance: HEPARIN SODIUM
     Indication: Anticoagulant therapy
     Dosage: INJECTION?INTERMITTENT IV BOLUS GIVEN IV PUSH?0830: HEPARIN 5,000 UNITS IV X 1 ?TOTAL OF 19,000 UNIT
     Route: 040
     Dates: start: 20231213
  2. HEPARIN SODIUM [Suspect]
     Active Substance: HEPARIN SODIUM
     Indication: Catheterisation cardiac
     Dosage: INJECTION?INTERMITTENT IV BOLUS GIVEN IV PUSH?0858: HEPARIN 4,000 UNITS IV X 1 ?TOTAL OF 19,000 UNIT
     Route: 040
     Dates: start: 20231213
  3. HEPARIN SODIUM [Suspect]
     Active Substance: HEPARIN SODIUM
     Dosage: INJECTION?INTERMITTENT IV BOLUS GIVEN IV PUSH?0921: HEPARIN 4,000 UNITS IV X 1 ?TOTAL OF 19,000 UNIT
     Route: 040
     Dates: start: 20231213
  4. HEPARIN SODIUM [Suspect]
     Active Substance: HEPARIN SODIUM
     Dosage: INJECTION?INTERMITTENT IV BOLUS GIVEN IV PUSH?0933: HEPARIN 3,000 UNITS IV X 1 ?TOTAL OF 19,000 UNIT
     Route: 040
     Dates: start: 20231213
  5. HEPARIN SODIUM [Suspect]
     Active Substance: HEPARIN SODIUM
     Dosage: INJECTION?INTERMITTENT IV BOLUS GIVEN IV PUSH?0952: HEPARIN 3,000 UNITS IV X 1 ?TOTAL OF 19,000 UNIT
     Route: 040
     Dates: start: 20231213
  6. NITROGLYCERIN [Concomitant]
     Active Substance: NITROGLYCERIN
     Indication: Product used for unknown indication
     Dosage: IV
     Route: 042
  7. Midazolam IV [Concomitant]
     Indication: Product used for unknown indication
     Dosage: IV
     Route: 042
  8. FENTANYL [Concomitant]
     Active Substance: FENTANYL\FENTANYL CITRATE
     Indication: Product used for unknown indication
     Dosage: IV
     Route: 042
  9. Verapamil IV [Concomitant]
     Indication: Product used for unknown indication
     Dosage: IV
     Route: 042
  10. Amiodarone IV [Concomitant]
     Indication: Product used for unknown indication
     Dosage: IV
     Route: 042
  11. Ticagrelor PO [Concomitant]
     Indication: Product used for unknown indication
     Dosage: PO
     Route: 048
  12. ASPIRIN [Concomitant]
     Active Substance: ASPIRIN
     Indication: Product used for unknown indication
     Dosage: ROUTINE SCHEDULED MEDIATIONS
  13. DOCUSATE [Concomitant]
     Active Substance: DOCUSATE
     Indication: Product used for unknown indication
     Dosage: ROUTINE SCHEDULED MEDIATIONS
  14. ATORVASTATIN [Concomitant]
     Active Substance: ATORVASTATIN
     Indication: Product used for unknown indication
     Dosage: ROUTINE SCHEDULED MEDIATIONS
  15. GABAPENTIN [Concomitant]
     Active Substance: GABAPENTIN
     Indication: Product used for unknown indication
     Dosage: ROUTINE SCHEDULED MEDIATIONS
  16. INSULIN GLARGINE-YFGN [Concomitant]
     Active Substance: INSULIN GLARGINE-YFGN
     Indication: Product used for unknown indication
     Dosage: ROUTINE SCHEDULED MEDIATIONS
  17. INSULIN NOS [Concomitant]
     Active Substance: INSULIN NOS
     Indication: Product used for unknown indication
     Dosage: ROUTINE SCHEDULED MEDIATIONS
  18. LOSARTAN [Concomitant]
     Active Substance: LOSARTAN
     Indication: Product used for unknown indication
     Dosage: ROUTINE SCHEDULED MEDIATIONS

REACTIONS (1)
  - Therapeutic product effect decreased [Unknown]

NARRATIVE: CASE EVENT DATE: 20231213
